FAERS Safety Report 14593094 (Version 2)
Quarter: 2019Q4

REPORT INFORMATION
  Report Type: Report from Study
  Country: NZ (occurrence: NZ)
  Receive Date: 20180302
  Receipt Date: 20191119
  Transmission Date: 20200122
  Serious: Yes (Other)
  Sender: FDA-Public Use
  Company Number: NZ-ASTRAZENECA-2018SE23752

PATIENT
  Age: 62 Year
  Sex: Female

DRUGS (13)
  1. DOCUSATE WITH SENNA [Concomitant]
     Dates: start: 20171207
  2. TIOTROPIUM [Concomitant]
     Active Substance: TIOTROPIUM
     Dates: start: 20140509
  3. OMEPRAZOLE. [Concomitant]
     Active Substance: OMEPRAZOLE
     Dates: start: 20160202
  4. CLOPIDOGREL [Concomitant]
     Active Substance: CLOPIDOGREL BISULFATE
     Dates: start: 20180101
  5. VITAMIN D [Concomitant]
     Active Substance: VITAMIN D NOS
     Dates: start: 20130404
  6. ATORVASTATIN [Concomitant]
     Active Substance: ATORVASTATIN
     Dates: start: 20130404
  7. SALBUTAMOL [Concomitant]
     Active Substance: ALBUTEROL
     Dates: start: 20160526
  8. CODEINE [Concomitant]
     Active Substance: CODEINE
     Dates: start: 20170507
  9. OTHER CILAZIPRIL [Concomitant]
     Dates: start: 20171212
  10. LEVOTHYROXINE. [Concomitant]
     Active Substance: LEVOTHYROXINE
     Dates: start: 20171004
  11. MEDI4736 [Suspect]
     Active Substance: DURVALUMAB
     Indication: NON-SMALL CELL LUNG CANCER
     Route: 042
     Dates: start: 20170712
  12. PARACETAMOL [Concomitant]
     Active Substance: ACETAMINOPHEN
     Dates: start: 20170507
  13. NYSTATIN. [Concomitant]
     Active Substance: NYSTATIN
     Dates: start: 20171214

REACTIONS (1)
  - Neutrophil count decreased [Recovered/Resolved]

NARRATIVE: CASE EVENT DATE: 20180215
